FAERS Safety Report 13965706 (Version 5)
Quarter: 2019Q4

REPORT INFORMATION
  Report Type: Spontaneous
  Country: US (occurrence: US)
  Receive Date: 20170913
  Receipt Date: 20191205
  Transmission Date: 20200122
  Serious: Yes (Other)
  Sender: FDA-Public Use
  Company Number: US-PFIZER INC-2017394897

PATIENT
  Age: 75 Year
  Sex: Female
  Weight: 86 kg

DRUGS (19)
  1. LORAZEPAM. [Concomitant]
     Active Substance: LORAZEPAM
     Indication: ANXIETY
     Dosage: 0.5 MG, 1X/DAY
     Dates: start: 201503
  2. IBRANCE [Suspect]
     Active Substance: PALBOCICLIB
     Dosage: 125 MG, 1X/DAY
     Dates: start: 20160113
  3. CRANBERRY. [Concomitant]
     Active Substance: CRANBERRY
     Dosage: UNK
     Dates: start: 20151201
  4. CENTRUM A TO ZINC [Concomitant]
     Active Substance: MINERALS\VITAMINS
     Dosage: UNK
     Dates: start: 20151201
  5. CENTRUM A TO ZINC [Concomitant]
     Active Substance: MINERALS\VITAMINS
     Dosage: UNK
     Dates: start: 20160113
  6. IBRANCE [Suspect]
     Active Substance: PALBOCICLIB
     Dosage: 125 MG, CYCLIC (21 DAYS ON THEN 7 DAYS OFF)
     Route: 048
     Dates: start: 20170101, end: 20170821
  7. IBRANCE [Suspect]
     Active Substance: PALBOCICLIB
     Dosage: 125 MG, 1X/DAY
     Dates: start: 20170906
  8. FASLODEX [Concomitant]
     Active Substance: FULVESTRANT
     Dosage: UNK
     Dates: start: 20151201
  9. AMLODIPINE [Concomitant]
     Active Substance: AMLODIPINE BESYLATE
     Indication: BLOOD PRESSURE ABNORMAL
     Dosage: 2.5 MG, 1X/DAY
     Route: 048
     Dates: start: 201207
  10. CENTRUM A TO ZINC [Concomitant]
     Active Substance: MINERALS\VITAMINS
     Indication: VITAMIN SUPPLEMENTATION
     Dosage: UNK
     Dates: start: 2015
  11. CRANBERRY. [Concomitant]
     Active Substance: CRANBERRY
     Dosage: UNK
     Dates: start: 20160113
  12. AMLODIPINE [Concomitant]
     Active Substance: AMLODIPINE BESYLATE
     Dosage: UNK
     Dates: start: 20151201
  13. AMLODIPINE [Concomitant]
     Active Substance: AMLODIPINE BESYLATE
     Dosage: UNK
     Dates: start: 20160113
  14. IBRANCE [Suspect]
     Active Substance: PALBOCICLIB
     Indication: BREAST CANCER
     Dosage: 125 MG, 1X/DAY
     Dates: start: 20151201
  15. FASLODEX [Concomitant]
     Active Substance: FULVESTRANT
     Dosage: UNK
     Dates: start: 20160113
  16. LORAZEPAM. [Concomitant]
     Active Substance: LORAZEPAM
     Dosage: UNK
     Dates: start: 20160113
  17. CRANBERRY. [Concomitant]
     Active Substance: CRANBERRY
     Indication: VITAMIN SUPPLEMENTATION
     Dosage: 1 DF, DAILY
     Route: 048
     Dates: start: 2014
  18. FASLODEX [Concomitant]
     Active Substance: FULVESTRANT
     Indication: BREAST CANCER
     Dosage: UNK, MONTHLY (INJECTED ONCE PER MONTH)
     Dates: start: 201503
  19. LORAZEPAM. [Concomitant]
     Active Substance: LORAZEPAM
     Dosage: UNK
     Dates: start: 20151201

REACTIONS (3)
  - Agranulocytosis [Recovered/Resolved]
  - Dyspnoea [Recovered/Resolved]
  - White blood cell count decreased [Recovered/Resolved]

NARRATIVE: CASE EVENT DATE: 2017
